FAERS Safety Report 16712032 (Version 2)
Quarter: 2019Q3

REPORT INFORMATION
  Report Type: Spontaneous
  Country: AU (occurrence: AU)
  Receive Date: 20190816
  Receipt Date: 20190820
  Transmission Date: 20191004
  Serious: Yes (Hospitalization)
  Sender: FDA-Public Use
  Company Number: AU-MYLANLABS-2018M1059274

PATIENT
  Sex: Male

DRUGS (1)
  1. CLOZARIL [Suspect]
     Active Substance: CLOZAPINE
     Indication: SCHIZOPHRENIA
     Dosage: 500 MG, UNK
     Route: 048
     Dates: start: 20160929

REACTIONS (4)
  - Confusional state [Unknown]
  - Bipolar disorder [Unknown]
  - Somnolence [Unknown]
  - Delirium [Unknown]

NARRATIVE: CASE EVENT DATE: 2018
